FAERS Safety Report 8987164 (Version 2)
Quarter: 2013Q1

REPORT INFORMATION
  Report Type: Spontaneous
  Country: US (occurrence: US)
  Receive Date: 20121226
  Receipt Date: 20130311
  Transmission Date: 20140127
  Serious: Yes (Hospitalization, Other)
  Sender: FDA-Public Use
  Company Number: US-PERRIGO-12US010961

PATIENT
  Age: 82 Year
  Sex: Female
  Weight: 83.9 kg

DRUGS (13)
  1. TROLAMINE SALICYLATE [Suspect]
     Indication: ARTHRALGIA
     Dosage: LARGE AMOUNT, SINGLE
     Route: 061
     Dates: start: 20121210, end: 20121210
  2. TROLAMINE SALICYLATE [Suspect]
     Dosage: LARGE AMOUNT, SINGLE
     Route: 061
     Dates: start: 20121212, end: 20121212
  3. GLIPIZIDE [Concomitant]
     Indication: DIABETES MELLITUS
     Dosage: UNK, BID
     Route: 048
  4. GABAPENTIN [Concomitant]
     Indication: PAIN
     Dosage: UNK, UNK
     Route: 048
  5. JANUVIA [Concomitant]
     Indication: DIABETES MELLITUS
     Dosage: UNK, UNK
     Route: 048
  6. AGGRENOX [Concomitant]
     Indication: ANTICOAGULANT THERAPY
     Dosage: UNK, UNK
     Route: 048
  7. FISH OIL [Concomitant]
     Indication: SUPPLEMENTATION THERAPY
     Dosage: UNK, QD
     Route: 048
  8. PRESERVISION [Concomitant]
     Indication: MACULAR DEGENERATION
     Dosage: UNK, UNK
     Route: 048
  9. TEKTURNA [Concomitant]
     Indication: HYPERTENSION
     Dosage: UNK, UNK
     Route: 048
  10. HCTZ [Concomitant]
     Indication: FLUID RETENTION
     Dosage: UNK, QD
     Route: 048
  11. MELOXICAM [Concomitant]
     Indication: PAIN
     Dosage: UNK, BID
     Route: 048
  12. CALCIUM [Concomitant]
     Indication: SUPPLEMENTATION THERAPY
     Dosage: UNK, BID
     Route: 048
  13. LEVOXYL [Concomitant]
     Indication: THYROID HORMONE REPLACEMENT THERAPY
     Dosage: UNK, UNK
     Route: 048

REACTIONS (3)
  - Syncope [Recovered/Resolved]
  - Dizziness [Recovered/Resolved]
  - Fall [Recovered/Resolved with Sequelae]
